APPROVED DRUG PRODUCT: TRIAMTERENE AND HYDROCHLOROTHIAZIDE
Active Ingredient: HYDROCHLOROTHIAZIDE; TRIAMTERENE
Strength: 25MG;37.5MG
Dosage Form/Route: CAPSULE;ORAL
Application: A201407 | Product #001 | TE Code: AB
Applicant: LANNETT CO INC
Approved: Dec 9, 2011 | RLD: No | RS: No | Type: RX